FAERS Safety Report 21120633 (Version 6)
Quarter: 2023Q1

REPORT INFORMATION
  Report Type: Spontaneous
  Country: US (occurrence: US)
  Receive Date: 20220722
  Receipt Date: 20230103
  Transmission Date: 20230418
  Serious: No
  Sender: FDA-Public Use
  Company Number: US-PFIZER INC-202200986552

PATIENT
  Age: 70 Year
  Sex: Female
  Weight: 68.04 kg

DRUGS (1)
  1. PAXLOVID [Suspect]
     Active Substance: NIRMATRELVIR\RITONAVIR
     Indication: COVID-19 treatment
     Dosage: [PF-07321332 150 MG]/[RITONAVIR 100 MG]; 2X/DAY
     Route: 048
     Dates: start: 20220715

REACTIONS (4)
  - Nausea [Not Recovered/Not Resolved]
  - Malaise [Unknown]
  - Incorrect dose administered [Unknown]
  - Product blister packaging issue [Unknown]

NARRATIVE: CASE EVENT DATE: 20220715
